FAERS Safety Report 7288585-1 (Version None)
Quarter: 2011Q1

REPORT INFORMATION
  Report Type: 
  Country: None (occurrence: None)
  Receive Date: 20110211
  Receipt Date: 20110204
  Transmission Date: 20110831
  Serious: Yes (Death, Hospitalization)
  Sender: FDA-Public Use
  Company Number: GR-ELI_LILLY_AND_COMPANY-GR201101006734

PATIENT
  Age: 73 Year
  Sex: Female

DRUGS (7)
  1. EFFEXOR [Concomitant]
     Indication: DEPRESSION
     Dosage: 75 MG, DAILY (1/D)
     Route: 048
  2. CARVIPRESS [Concomitant]
  3. ZYPREXA [Suspect]
     Indication: DELIRIUM
     Dosage: 5 MG, DAILY (1/D)
     Route: 048
     Dates: start: 20101201
  4. ZYPREXA [Suspect]
     Dosage: 20 MG, DAILY (1/D)
     Route: 048
  5. DIAMICRON [Concomitant]
     Indication: TYPE 2 DIABETES MELLITUS
     Dosage: UNK UNK, DAILY (1/D)
     Route: 048
  6. BONIVA [Concomitant]
     Indication: OSTEOPOROSIS
     Dosage: 150 MG, DAILY (1/D)
     Route: 048
  7. ZYPREXA [Suspect]
     Dosage: 15 MG, DAILY (1/D)
     Route: 048

REACTIONS (7)
  - COMA [None]
  - CEREBROVASCULAR ACCIDENT [None]
  - BLOOD GLUCOSE INCREASED [None]
  - SEPSIS [None]
  - BLOOD KETONE BODY [None]
  - OFF LABEL USE [None]
  - MUSCLE RIGIDITY [None]
